FAERS Safety Report 18041730 (Version 1)
Quarter: 2020Q3

REPORT INFORMATION
  Report Type: Spontaneous
  Country: US (occurrence: US)
  Receive Date: 20200720
  Receipt Date: 20200720
  Transmission Date: 20201103
  Serious: Yes (Hospitalization)
  Sender: FDA-Public Use
  Company Number: US-NOVAST LABORATORIES LTD.-2020NOV000281

PATIENT
  Age: 15 Year
  Sex: Female

DRUGS (1)
  1. METOPROLOL SUCCINATE. [Suspect]
     Active Substance: METOPROLOL SUCCINATE
     Indication: PRODUCT USED FOR UNKNOWN INDICATION
     Dosage: TOOK 9 PILLS OF 50 MILLIGRAM
     Route: 065

REACTIONS (2)
  - Overdose [Unknown]
  - Adverse event [Unknown]

NARRATIVE: CASE EVENT DATE: 20200705
